FAERS Safety Report 25734049 (Version 1)
Quarter: 2025Q3

REPORT INFORMATION
  Report Type: Spontaneous
  Country: GB (occurrence: GB)
  Receive Date: 20250828
  Receipt Date: 20250828
  Transmission Date: 20251021
  Serious: Yes (Other)
  Sender: AUROBINDO
  Company Number: GB-MHRA-MED-202508142203410960-CJFRK

PATIENT
  Sex: Female
  Weight: 110 kg

DRUGS (3)
  1. DULOXETINE HYDROCHLORIDE [Suspect]
     Active Substance: DULOXETINE HYDROCHLORIDE
     Indication: Trigeminal neuralgia
     Route: 065
     Dates: start: 20250607
  2. CETIRIZINE [Concomitant]
     Active Substance: CETIRIZINE HYDROCHLORIDE
     Indication: Hypersensitivity
     Route: 065
     Dates: start: 19900101
  3. ACETAMINOPHEN [Concomitant]
     Active Substance: ACETAMINOPHEN
     Indication: Analgesic therapy
     Route: 065
     Dates: start: 19990814

REACTIONS (9)
  - Nausea [Not Recovered/Not Resolved]
  - Insomnia [Not Recovered/Not Resolved]
  - Muscular weakness [Not Recovered/Not Resolved]
  - Abnormal dreams [Not Recovered/Not Resolved]
  - Nervousness [Not Recovered/Not Resolved]
  - Hyperhidrosis [Not Recovered/Not Resolved]
  - Headache [Not Recovered/Not Resolved]
  - Muscle tightness [Not Recovered/Not Resolved]
  - Somnolence [Recovering/Resolving]

NARRATIVE: CASE EVENT DATE: 20250608
